FAERS Safety Report 7708707-5 (Version None)
Quarter: 2011Q3

REPORT INFORMATION
  Report Type: 
  Country: None (occurrence: None)
  Receive Date: 20110825
  Receipt Date: 20110817
  Transmission Date: 20111222
  Serious: Yes (Death, Other)
  Sender: FDA-Public Use
  Company Number: US-BAYER-201041788NA

PATIENT
  Age: 68 Year
  Sex: Male
  Weight: 125.2 kg

DRUGS (28)
  1. LORTAB [Concomitant]
  2. COLCHICINE [Concomitant]
     Dosage: 0.6 MG, PRN
  3. SUFENTANIL CITRATE [Concomitant]
     Dosage: UNK
     Dates: start: 20041203, end: 20041203
  4. PROPOFOL [Concomitant]
     Dosage: 50 ML, UNK
     Dates: start: 20041203, end: 20041203
  5. PROTAMINE [Concomitant]
     Dosage: 380 MG, UNK
     Dates: start: 20041203, end: 20041203
  6. TRASYLOL [Suspect]
     Dosage: 100 ML, ONCE LOADING DOSE
     Route: 042
     Dates: start: 20041203, end: 20041203
  7. METOPROLOL [Concomitant]
     Dosage: 100 MG ONE TABLET TWICE DAILY
  8. FUROSEMIDE [Concomitant]
  9. PSEUDOEPHEDRINE HCL [Concomitant]
     Dosage: AS NEEDED
  10. HEPARIN [Concomitant]
     Dosage: 19000 U, ONCE
     Route: 042
     Dates: start: 20041203, end: 20041203
  11. DOBUTAMINE HCL [Concomitant]
     Dosage: 5 MG/KG/MIN
     Route: 042
     Dates: start: 20041203, end: 20041203
  12. LISINOPRIL [Concomitant]
  13. PANTOPRAZOLE [Concomitant]
  14. TRIPROLIDINE HYDROCHLORIDE [Concomitant]
     Dosage: AS NEEDED
  15. SOLU-CORTEF [Concomitant]
     Dosage: 100 MG, UNK
     Dates: start: 20041203, end: 20041203
  16. CONTRAST MEDIA [Concomitant]
     Indication: CATHETERISATION CARDIAC
     Dosage: UNK
     Dates: start: 20041130
  17. LANOXIN [Concomitant]
     Dosage: 0.125 MG, QD
  18. TRASYLOL [Suspect]
     Indication: CORONARY ARTERY BYPASS
     Dosage: 100 ML, ONCE PUMP PRIME
     Route: 042
     Dates: start: 20041203, end: 20041203
  19. ALTACE [Concomitant]
     Dosage: 2.5 MG, QD
  20. PROCARDIA [Concomitant]
  21. HEPARIN [Concomitant]
     Dosage: 3000 UNITS/KG
     Route: 042
     Dates: start: 20041203, end: 20041203
  22. HEPARIN [Concomitant]
     Dosage: 38000 U VIA CARDIOPULMONARY BYPASS
     Dates: start: 20041203, end: 20041203
  23. ISOVUE-370 [Concomitant]
     Indication: ANGIOGRAM
     Dosage: 100 ML, UNK
     Dates: start: 20041201
  24. TRASYLOL [Suspect]
     Dosage: 25 ML/HR
     Route: 042
     Dates: start: 20041203, end: 20041203
  25. POTASSIUM CHLORIDE [Concomitant]
     Dosage: 16 MEQ, QD
  26. PREDNISONE [Concomitant]
  27. PRILOSEC [Concomitant]
     Dosage: 20 MG, BID
  28. CALCIUM CHLORIDE [Concomitant]
     Dosage: 0.5 G VIA CARDIOPULMONARY BYPASS
     Dates: start: 20041203, end: 20041203

REACTIONS (11)
  - RENAL INJURY [None]
  - EMOTIONAL DISTRESS [None]
  - ANXIETY [None]
  - UNEVALUABLE EVENT [None]
  - RENAL FAILURE [None]
  - PAIN [None]
  - STRESS [None]
  - RENAL IMPAIRMENT [None]
  - DEATH [None]
  - MULTI-ORGAN FAILURE [None]
  - FEAR [None]
